FAERS Safety Report 5959715-6 (Version None)
Quarter: 2008Q4

REPORT INFORMATION
  Report Type: 
  Country: None (occurrence: None)
  Receive Date: 20081119
  Receipt Date: 20081119
  Transmission Date: 20090506
  Serious: Yes (Hospitalization)
  Sender: FDA-Public Use
  Company Number: None

PATIENT
  Sex: Female

DRUGS (2)
  1. LANTUS [Suspect]
     Indication: TYPE 1 DIABETES MELLITUS
     Dosage: 8 UNITS QHS SUBQ
     Route: 058
  2. PRANDIN [Suspect]
     Indication: TYPE 1 DIABETES MELLITUS
     Dosage: 1 MG QAC PO
     Route: 048

REACTIONS (2)
  - DYSPNOEA [None]
  - HYPOGLYCAEMIA [None]
